FAERS Safety Report 5587743-1 (Version None)
Quarter: 2007Q4

REPORT INFORMATION
  Report Type: 
  Country: None (occurrence: None)
  Receive Date: 20071210
  Receipt Date: 20070723
  Transmission Date: 20080405
  Serious: Yes (Hospitalization)
  Sender: FDA-Public Use
  Company Number: SPV1-2007-03670

PATIENT
  Age: 12 Year
  Sex: Male
  Weight: 42.8 kg

DRUGS (2)
  1. ADDERALL 10 [Suspect]
     Indication: ATTENTION DEFICIT/HYPERACTIVITY DISORDER
     Dosage: SEE IMAGE
     Route: 048
     Dates: end: 20070501
  2. CLONIDINE [Concomitant]

REACTIONS (2)
  - EPISTAXIS [None]
  - HYPERTENSION [None]
